FAERS Safety Report 18131885 (Version 5)
Quarter: 2021Q1

REPORT INFORMATION
  Report Type: Spontaneous
  Country: US (occurrence: US)
  Receive Date: 20200810
  Receipt Date: 20210326
  Transmission Date: 20210419
  Serious: Yes (Hospitalization, Other)
  Sender: FDA-Public Use
  Company Number: US-PFIZER INC-2020304257

PATIENT
  Age: 48 Year
  Sex: Male

DRUGS (1)
  1. PHENYTOIN SODIUM. [Suspect]
     Active Substance: PHENYTOIN SODIUM
     Dosage: UNK

REACTIONS (9)
  - Drug ineffective [Unknown]
  - Anaemia [Unknown]
  - Seizure [Unknown]
  - Blood testosterone decreased [Unknown]
  - Blood iron decreased [Unknown]
  - Malabsorption [Unknown]
  - Balance disorder [Unknown]
  - Arthropathy [Unknown]
  - Endocrine disorder [Unknown]
